FAERS Safety Report 10218388 (Version 1)
Quarter: 2014Q2

REPORT INFORMATION
  Report Type: Report from Study
  Country: US (occurrence: US)
  Receive Date: 20140605
  Receipt Date: 20140605
  Transmission Date: 20141212
  Serious: Yes (Other)
  Sender: FDA-Public Use
  Company Number: US-JNJFOC-20140510587

PATIENT
  Age: 36 Year
  Sex: Male

DRUGS (1)
  1. DURAGESIC [Suspect]
     Indication: PRODUCT USED FOR UNKNOWN INDICATION
     Route: 048

REACTIONS (3)
  - Unresponsive to stimuli [Unknown]
  - Intentional product misuse [Unknown]
  - Wrong technique in drug usage process [Unknown]
